FAERS Safety Report 8596130-3 (Version None)
Quarter: 2012Q3

REPORT INFORMATION
  Report Type: 
  Country: None (occurrence: None)
  Receive Date: 20120801
  Receipt Date: 20120723
  Transmission Date: 20120928
  Serious: Yes (Death)
  Sender: FDA-Public Use
  Company Number: 2012HGS-003774

PATIENT
  Sex: Female

DRUGS (14)
  1. METOPROLOL SUCCINATE [Concomitant]
  2. PREDNISOLONE [Concomitant]
  3. BENLYSTA [Suspect]
     Indication: SYSTEMIC LUPUS ERYTHEMATOSUS
     Dosage: 1 IN 1 WK, INTRAVENOUS DRIP
     Route: 041
     Dates: start: 20120315
  4. BENLYSTA [Suspect]
     Indication: SYSTEMIC LUPUS ERYTHEMATOSUS
     Dosage: 1 IN 1 WK, INTRAVENOUS DRIP
     Route: 041
     Dates: start: 20120509
  5. BENLYSTA [Suspect]
     Indication: SYSTEMIC LUPUS ERYTHEMATOSUS
     Dosage: 1 IN 1 WK, INTRAVENOUS DRIP
     Route: 041
     Dates: start: 20120607, end: 20120607
  6. BENLYSTA [Suspect]
     Indication: SYSTEMIC LUPUS ERYTHEMATOSUS
     Dosage: 1 IN 1 WK, INTRAVENOUS DRIP
     Route: 041
     Dates: start: 20120412
  7. BENLYSTA [Suspect]
     Indication: SYSTEMIC LUPUS ERYTHEMATOSUS
     Dosage: 1 IN 1 WK, INTRAVENOUS DRIP
     Route: 041
     Dates: start: 20120126
  8. BENLYSTA [Suspect]
     Indication: SYSTEMIC LUPUS ERYTHEMATOSUS
     Dosage: 1 IN 1 WK, INTRAVENOUS DRIP
     Route: 041
     Dates: start: 20120216
  9. DAPSONE [Concomitant]
  10. RANITIDINE HYDROCHLORIDE (RANITIDINE HYDROCHLORIDE) (RANITIDINE HYDROC [Concomitant]
  11. OMEPRAZOLE [Concomitant]
  12. CELECOXIB [Concomitant]
  13. CLEMASTINE FUMARATE (CLEMASTINE FUMARATE) (CLEMASTINE FUMARATE) [Concomitant]
  14. HYDROXYCHLOROQUINE SULPHATE (HYDROXYCHLOROQUINE SULFATE) HYDROXYCHLORO [Concomitant]

REACTIONS (1)
  - MYOCARDIAL INFARCTION [None]
